FAERS Safety Report 11941831 (Version 1)
Quarter: 2016Q1

REPORT INFORMATION
  Report Type: Spontaneous
  Country: DE (occurrence: DE)
  Receive Date: 20160124
  Receipt Date: 20160124
  Transmission Date: 20160526
  Serious: Yes (Disabling, Other)
  Sender: FDA-Public Use
  Company Number: DE-DEXPHARM-20160062

PATIENT
  Age: 53 Year
  Sex: Female
  Weight: 69 kg

DRUGS (1)
  1. OMEPRAZOL - 1 A PHARMA [Suspect]
     Active Substance: OMEPRAZOLE
     Indication: ABDOMINAL PAIN UPPER
     Dosage: DAILY DOSE: 1 DF DOSAGE FORM EVERY DAY
     Route: 048
     Dates: start: 20151229

REACTIONS (10)
  - Myalgia [Unknown]
  - Thirst [Unknown]
  - Pharyngeal oedema [Unknown]
  - Dry mouth [Unknown]
  - Gingival oedema [Unknown]
  - Paraesthesia oral [Unknown]
  - Lip swelling [Unknown]
  - Headache [Unknown]
  - Dysgeusia [Unknown]
  - Abdominal distension [Recovered/Resolved]

NARRATIVE: CASE EVENT DATE: 20160105
